FAERS Safety Report 5008062-8 (Version None)
Quarter: 2006Q2

REPORT INFORMATION
  Report Type: 
  Country: None (occurrence: None)
  Receive Date: 20060516
  Receipt Date: 20060508
  Transmission Date: 20061013
  Serious: Yes (Death)
  Sender: FDA-Public Use
  Company Number: OMPQ-NO-0605S-0298

PATIENT
  Age: 20 Year
  Sex: Female

DRUGS (2)
  1. OMNIPAQUE 140 [Suspect]
     Indication: HEMIPLEGIA
     Dosage: 2 ML SINGLE DOSE IV
     Route: 042
     Dates: start: 20060506, end: 20060506
  2. OMNIPAQUE 140 [Suspect]

REACTIONS (2)
  - CEREBRAL HAEMORRHAGE [None]
  - CONTRAST MEDIA REACTION [None]
